FAERS Safety Report 10900981 (Version 2)
Quarter: 2016Q1

REPORT INFORMATION
  Report Type: Spontaneous
  Country: US (occurrence: US)
  Receive Date: 20150303
  Receipt Date: 20160303
  Transmission Date: 20160525
  Serious: Yes (Hospitalization)
  Sender: FDA-Public Use
  Company Number: US-SEPTODONT-201502502

PATIENT
  Age: 40 Year
  Sex: Female

DRUGS (2)
  1. ORABLOC 40; 10 MG/ML; UG/ML INJECTION [Concomitant]
     Dosage: 3/4 CARPULE VIA BUCCAL INFILTRATION; 1/4 CARPULE VIA PALATAL INFILTRATION AROUND #15
  2. LIDOCAINE HYDROCHLORIDE 2% WITH EPINEPHRINE 1:100,000 INJECTION [Suspect]
     Active Substance: EPINEPHRINE\LIDOCAINE HYDROCHLORIDE
     Indication: LOCAL ANAESTHESIA
     Dosage: 1 CARPULE, VIA BUCCAL INFILTRATION
     Route: 004

REACTIONS (4)
  - Dyspnoea [Unknown]
  - Diplopia [Unknown]
  - Hypertension [Unknown]
  - Pharyngeal oedema [Unknown]
